FAERS Safety Report 14309131 (Version 2)
Quarter: 2019Q4

REPORT INFORMATION
  Report Type: Spontaneous
  Country: US (occurrence: US)
  Receive Date: 20171220
  Receipt Date: 20191021
  Transmission Date: 20200122
  Serious: Yes (Hospitalization, Other)
  Sender: FDA-Public Use
  Company Number: US-PFIZER INC-2017541786

PATIENT
  Age: 67 Year
  Sex: Male

DRUGS (11)
  1. VIAGRA [Suspect]
     Active Substance: SILDENAFIL CITRATE
     Dosage: 100 MG, UNK (FOUR TIMES A MONTH)
     Dates: start: 201111, end: 201204
  2. VIAGRA [Suspect]
     Active Substance: SILDENAFIL CITRATE
     Dosage: 100 MG, UNK (FOUR TIMES A MONTH)
     Dates: start: 201701, end: 201703
  3. CIALIS [Suspect]
     Active Substance: TADALAFIL
     Indication: ERECTILE DYSFUNCTION
     Dosage: 5 TO 20 MG WITH UNKNOWN FREQUENCY
     Dates: start: 201502, end: 201502
  4. VIAGRA [Suspect]
     Active Substance: SILDENAFIL CITRATE
     Dosage: 100 MG, UNK (FOUR TIMES A MONTH)
     Dates: start: 201502, end: 201701
  5. VIAGRA [Suspect]
     Active Substance: SILDENAFIL CITRATE
     Dosage: 100 MG, UNK (FOUR TIMES A MONTH)
     Dates: start: 201703, end: 201706
  6. VIAGRA [Suspect]
     Active Substance: SILDENAFIL CITRATE
     Dosage: 100 MG, UNK (FOUR TIMES A MONTH)
     Dates: start: 200107, end: 200207
  7. VIAGRA [Suspect]
     Active Substance: SILDENAFIL CITRATE
     Dosage: 100 MG, UNK (FOUR TIMES A MONTH)
     Dates: start: 201706, end: 201708
  8. VIAGRA [Suspect]
     Active Substance: SILDENAFIL CITRATE
     Indication: ERECTILE DYSFUNCTION
     Dosage: UNK
     Route: 048
     Dates: end: 201705
  9. VIAGRA [Suspect]
     Active Substance: SILDENAFIL CITRATE
     Dosage: 100 MG, UNK (FOUR TIMES A MONTH)
     Dates: start: 200208, end: 200503
  10. VIAGRA [Suspect]
     Active Substance: SILDENAFIL CITRATE
     Dosage: 100 MG, UNK (FOUR TIMES A MONTH)
     Dates: start: 201205, end: 201211
  11. VIAGRA [Suspect]
     Active Substance: SILDENAFIL CITRATE
     Dosage: 100 MG, UNK (FOUR TIMES A MONTH)
     Dates: start: 201211, end: 201501

REACTIONS (1)
  - Malignant melanoma [Unknown]

NARRATIVE: CASE EVENT DATE: 20151228
